FAERS Safety Report 4426411-6 (Version None)
Quarter: 2004Q3

REPORT INFORMATION
  Report Type: 
  Country: None (occurrence: None)
  Receive Date: 20040811
  Receipt Date: 20040802
  Transmission Date: 20050211
  Serious: Yes (Other)
  Sender: FDA-Public Use
  Company Number: 2004226335GB

PATIENT
  Age: 27 Year
  Sex: Female

DRUGS (2)
  1. FRAGMIN [Suspect]
     Indication: THROMBOSIS PROPHYLAXIS
     Dosage: SEE IMAGE
     Route: 058
  2. ASPIRIN [Concomitant]

REACTIONS (6)
  - CAESAREAN SECTION [None]
  - COMPLICATIONS OF MATERNAL EXPOSURE TO THERAPEUTIC DRUGS [None]
  - DRUG INEFFECTIVE [None]
  - POSTPARTUM HAEMORRHAGE [None]
  - PREMATURE SEPARATION OF PLACENTA [None]
  - TRANSIENT ISCHAEMIC ATTACK [None]
